FAERS Safety Report 7819626 (Version 8)
Quarter: 2013Q2

REPORT INFORMATION
  Report Type: Spontaneous
  Country: US (occurrence: US)
  Receive Date: 20110218
  Receipt Date: 20130402
  Transmission Date: 20140414
  Serious: No
  Sender: FDA-Public Use
  Company Number: US-ASTRAZENECA-2010SE20385

PATIENT
  Age: 87 Year
  Sex: Female

DRUGS (3)
  1. NEXIUM [Suspect]
     Indication: GASTROOESOPHAGEAL REFLUX DISEASE
     Route: 048
  2. SYMBICORT PMDI [Suspect]
     Route: 055
  3. ADVAIR [Concomitant]

REACTIONS (14)
  - Asthma [Unknown]
  - Gastrooesophageal reflux disease [Unknown]
  - Nerve compression [Unknown]
  - Aphagia [Unknown]
  - Fracture [Unknown]
  - Hypoacusis [Unknown]
  - Sleep disorder due to general medical condition, insomnia type [Unknown]
  - Exostosis [Unknown]
  - Feeling abnormal [Unknown]
  - Gastric disorder [Unknown]
  - Malaise [Unknown]
  - Vomiting [Unknown]
  - Nausea [Unknown]
  - Drug dose omission [Unknown]
